FAERS Safety Report 6334655-1 (Version None)
Quarter: 2009Q3

REPORT INFORMATION
  Report Type: 
  Country: None (occurrence: None)
  Receive Date: 20090831
  Receipt Date: 20090818
  Transmission Date: 20100115
  Serious: Yes (Other)
  Sender: FDA-Public Use
  Company Number: EE-ROCHE-647468

PATIENT
  Sex: Female
  Weight: 46 kg

DRUGS (1)
  1. ROACCUTANE [Suspect]
     Indication: ACNE CONGLOBATA
     Dosage: DOSE REGIMEN REPORTED AS 30 MG. FREQUENCY REPORTED AS X 3.
     Route: 048
     Dates: start: 20090604

REACTIONS (1)
  - ABORTION INDUCED [None]
